FAERS Safety Report 21743179 (Version 1)
Quarter: 2022Q4

REPORT INFORMATION
  Report Type: Report from Study
  Country: US (occurrence: US)
  Receive Date: 20221217
  Receipt Date: 20221217
  Transmission Date: 20230112
  Serious: No
  Sender: FDA-Public Use
  Company Number: US-ABBVIE-22K-163-4515567-00

PATIENT
  Sex: Male

DRUGS (4)
  1. HUMIRA [Suspect]
     Active Substance: ADALIMUMAB
     Indication: Hidradenitis
     Dosage: DAY 1
     Route: 058
     Dates: start: 20220124, end: 20220124
  2. HUMIRA [Suspect]
     Active Substance: ADALIMUMAB
     Dosage: DAY 15
     Route: 058
     Dates: start: 20220208, end: 20220208
  3. HUMIRA [Suspect]
     Active Substance: ADALIMUMAB
     Dosage: DAY 29?DUE TO PARTIAL DATE LAST ADMIN DATE WAS NOT CAPTURED?ONSET DATES OF 2022 WAS NOT CAPTURED ...
     Route: 058
     Dates: start: 20220221
  4. HUMIRA [Suspect]
     Active Substance: ADALIMUMAB
     Dosage: DUE TO PARTIAL DATE FIRST ADMIN DATE AND LAST ADMIN DATE WAS NOT CAPTURED?ONSET DATES OF 2022 WAS...
     Route: 058

REACTIONS (2)
  - Pruritus [Not Recovered/Not Resolved]
  - Pain of skin [Not Recovered/Not Resolved]
